FAERS Safety Report 15941573 (Version 3)
Quarter: 2019Q1

REPORT INFORMATION
  Report Type: Spontaneous
  Country: US (occurrence: US)
  Receive Date: 20190208
  Receipt Date: 20190222
  Transmission Date: 20190417
  Serious: Yes (Other)
  Sender: FDA-Public Use
  Company Number: US-ASTRAZENECA-2018SF13604

PATIENT
  Age: 18074 Day
  Sex: Female
  Weight: 104.3 kg

DRUGS (32)
  1. ZEMPLAR [Concomitant]
     Active Substance: PARICALCITOL
     Route: 048
  2. TORSEMIDE. [Concomitant]
     Active Substance: TORSEMIDE
     Route: 048
  3. NEXIUM [Suspect]
     Active Substance: ESOMEPRAZOLE MAGNESIUM
     Route: 048
  4. PRILOSEC OTC [Suspect]
     Active Substance: OMEPRAZOLE MAGNESIUM
     Route: 048
  5. METOCLOPRAMIDE. [Concomitant]
     Active Substance: METOCLOPRAMIDE
     Route: 048
  6. METOCLOPRAMIDE. [Concomitant]
     Active Substance: METOCLOPRAMIDE
     Route: 048
  7. NEXIUM I.V. [Suspect]
     Active Substance: ESOMEPRAZOLE SODIUM
     Route: 042
  8. LORATADINE. [Concomitant]
     Active Substance: LORATADINE
     Route: 048
  9. LOSARTAN. [Concomitant]
     Active Substance: LOSARTAN
     Route: 048
  10. CLONIDINE. [Concomitant]
     Active Substance: CLONIDINE
     Route: 048
  11. CALCIUM ACETATE. [Concomitant]
     Active Substance: CALCIUM ACETATE
     Route: 048
  12. NEXIUM [Suspect]
     Active Substance: ESOMEPRAZOLE MAGNESIUM
     Route: 048
  13. NEXIUM 24HR [Suspect]
     Active Substance: ESOMEPRAZOLE MAGNESIUM
     Route: 048
  14. HYDROCHLOROTHIAZIDE. [Concomitant]
     Active Substance: HYDROCHLOROTHIAZIDE
     Route: 048
  15. ATORVASTATIN [Concomitant]
     Active Substance: ATORVASTATIN
     Route: 048
  16. PROPOFOL. [Concomitant]
     Active Substance: PROPOFOL
     Route: 048
  17. FENTANYL. [Concomitant]
     Active Substance: FENTANYL
     Route: 048
  18. PRILOSEC [Suspect]
     Active Substance: OMEPRAZOLE MAGNESIUM
     Route: 048
  19. FUROSEMIDE. [Concomitant]
     Active Substance: FUROSEMIDE
     Route: 048
     Dates: start: 20110414
  20. VICODIN [Concomitant]
     Active Substance: ACETAMINOPHEN\HYDROCODONE BITARTRATE
     Route: 048
  21. FENTANYL. [Concomitant]
     Active Substance: FENTANYL
     Route: 048
  22. DOXAZOSIN [Concomitant]
     Active Substance: DOXAZOSIN\DOXAZOSIN MESYLATE
     Route: 048
  23. LASIX [Concomitant]
     Active Substance: FUROSEMIDE
     Route: 048
  24. TRAMADOL. [Concomitant]
     Active Substance: TRAMADOL
     Route: 048
  25. GABAPENTIN. [Concomitant]
     Active Substance: GABAPENTIN
     Route: 048
  26. DOCUSATE [Concomitant]
     Active Substance: DOCUSATE
     Route: 048
  27. AMLODIPINE [Concomitant]
     Active Substance: AMLODIPINE BESYLATE
     Route: 048
  28. ONDANSETRON [Concomitant]
     Active Substance: ONDANSETRON
     Route: 048
  29. FAMOTIDINE. [Concomitant]
     Active Substance: FAMOTIDINE
     Route: 048
  30. VALSARTAN. [Concomitant]
     Active Substance: VALSARTAN
     Route: 048
  31. HYDRALAZINE [Concomitant]
     Active Substance: HYDRALAZINE HYDROCHLORIDE
     Route: 048
  32. SEVELAMER [Concomitant]
     Active Substance: SEVELAMER
     Route: 048

REACTIONS (5)
  - End stage renal disease [Unknown]
  - Nephrogenic anaemia [Unknown]
  - Renal injury [Unknown]
  - Renal failure [Unknown]
  - Chronic kidney disease [Unknown]

NARRATIVE: CASE EVENT DATE: 20110223
